FAERS Safety Report 4773113-2 (Version None)
Quarter: 2005Q3

REPORT INFORMATION
  Report Type: 
  Country: None (occurrence: None)
  Receive Date: 20050915
  Receipt Date: 20050915
  Transmission Date: 20060218
  Serious: No
  Sender: FDA-Public Use
  Company Number: None

PATIENT
  Age: 55 Year
  Sex: Male
  Weight: 79.3795 kg

DRUGS (1)
  1. ZETIA [Suspect]
     Indication: LOW DENSITY LIPOPROTEIN
     Dosage: 10 MG ONCE DAILY PO
     Route: 048
     Dates: start: 20050901, end: 20050913

REACTIONS (8)
  - AMNESIA [None]
  - BACK PAIN [None]
  - CRYING [None]
  - FATIGUE [None]
  - JOINT STIFFNESS [None]
  - MYALGIA [None]
  - NECK PAIN [None]
  - SHOULDER PAIN [None]
